FAERS Safety Report 5098195-2 (Version None)
Quarter: 2006Q3

REPORT INFORMATION
  Report Type: 
  Country: None (occurrence: None)
  Receive Date: 20060906
  Receipt Date: 20060526
  Transmission Date: 20061208
  Serious: No
  Sender: FDA-Public Use
  Company Number: US-GLAXOSMITHKLINE-A0607098A

PATIENT
  Age: 61 Year
  Sex: Male

DRUGS (8)
  1. REQUIP [Suspect]
     Indication: RESTLESS LEGS SYNDROME
     Dosage: .25MG AT NIGHT
     Route: 048
     Dates: start: 20060525
  2. WELLBUTRIN [Concomitant]
  3. ADDERALL 10 [Concomitant]
  4. FLOMAX [Concomitant]
  5. DETROL LA [Concomitant]
  6. ALPHAGAN [Concomitant]
  7. VIAGRA [Concomitant]
  8. KEFLEX [Concomitant]

REACTIONS (3)
  - FALL [None]
  - GAIT DISTURBANCE [None]
  - MUSCLE SPASMS [None]
